FAERS Safety Report 19072209 (Version 1)
Quarter: 2021Q1

REPORT INFORMATION
  Report Type: Spontaneous
  Country: US (occurrence: US)
  Receive Date: 20210330
  Receipt Date: 20210330
  Transmission Date: 20210420
  Serious: Yes (Other)
  Sender: FDA-Public Use
  Company Number: US-MYLANLABS-2021M1018714

PATIENT
  Age: 21 Year
  Sex: Male

DRUGS (5)
  1. VINCRISTINE [Suspect]
     Active Substance: VINCRISTINE
     Indication: RENAL CANCER
     Dosage: UNK, CYCLE
     Route: 065
  2. DOXORUBICIN [Suspect]
     Active Substance: DOXORUBICIN
     Indication: RENAL CANCER
     Dosage: UNK UNK, CYCLE
     Route: 065
  3. IFOSFAMIDE. [Suspect]
     Active Substance: IFOSFAMIDE
     Indication: RENAL CANCER
     Dosage: UNK, CYCLE
     Route: 065
  4. CYCLOPHOSPHAMIDE. [Suspect]
     Active Substance: CYCLOPHOSPHAMIDE
     Indication: RENAL CANCER
     Dosage: UNK UNK, CYCLE
     Route: 065
  5. ETOPOSIDE. [Suspect]
     Active Substance: ETOPOSIDE
     Indication: RENAL CANCER
     Dosage: UNK, CYCLE
     Route: 065

REACTIONS (3)
  - Nausea [Recovered/Resolved]
  - Neutropenia [Unknown]
  - Nephropathy toxic [Recovering/Resolving]
